FAERS Safety Report 6730488-2 (Version None)
Quarter: 2010Q2

REPORT INFORMATION
  Report Type: 
  Country: None (occurrence: None)
  Receive Date: 20100514
  Receipt Date: 20100505
  Transmission Date: 20101027
  Serious: Yes (Other)
  Sender: FDA-Public Use
  Company Number: A-CH2010-34927

PATIENT
  Age: 41 Year
  Sex: Female

DRUGS (2)
  1. TRACLEER [Suspect]
     Indication: SKIN ULCER
     Dosage: 125 MG, BID, ORAL, 62.5 MG, BID, ORAL
     Route: 048
     Dates: start: 20081022, end: 20081120
  2. TRACLEER [Suspect]
     Indication: SKIN ULCER
     Dosage: 125 MG, BID, ORAL, 62.5 MG, BID, ORAL
     Route: 048
     Dates: start: 20081121, end: 20090504

REACTIONS (3)
  - CONGENITAL CEREBROVASCULAR ANOMALY [None]
  - HEADACHE [None]
  - SCINTILLATING SCOTOMA [None]
